FAERS Safety Report 9594906 (Version 2)
Quarter: 2013Q4

REPORT INFORMATION
  Report Type: Spontaneous
  Country: US (occurrence: US)
  Receive Date: 20131004
  Receipt Date: 20131004
  Transmission Date: 20140711
  Serious: No
  Sender: FDA-Public Use
  Company Number: US-PURDUE-USA-2012-0090494

PATIENT
  Sex: Female

DRUGS (5)
  1. BUTRANS [Suspect]
     Indication: PAIN
     Dosage: 20 MCG/HR, UNK
     Route: 062
  2. BUTRANS [Suspect]
     Dosage: 10 MCG/HR, UNK
     Route: 062
  3. SAVELLA [Concomitant]
     Indication: PAIN
     Dosage: 100 MG, BID
     Dates: start: 201204
  4. GLYBURIDE [Concomitant]
     Indication: DIABETES MELLITUS
     Dosage: 500 MG, DAILY
  5. GABAPENTIN [Concomitant]
     Indication: PAIN
     Dosage: 300 UNK, TID

REACTIONS (2)
  - Application site discolouration [Unknown]
  - Application site rash [Not Recovered/Not Resolved]
